FAERS Safety Report 11287567 (Version 2)
Quarter: 2016Q4

REPORT INFORMATION
  Report Type: Spontaneous
  Country: US (occurrence: US)
  Receive Date: 20150721
  Receipt Date: 20161222
  Transmission Date: 20170206
  Serious: Yes (Other)
  Sender: FDA-Public Use
  Company Number: US-ELI_LILLY_AND_COMPANY-US201507004758

PATIENT
  Sex: Female

DRUGS (2)
  1. CYMBALTA [Suspect]
     Active Substance: DULOXETINE HYDROCHLORIDE
     Indication: PAIN
  2. CYMBALTA [Suspect]
     Active Substance: DULOXETINE HYDROCHLORIDE
     Indication: DEPRESSION

REACTIONS (13)
  - Mood swings [Unknown]
  - Drug withdrawal syndrome [Unknown]
  - Suicidal ideation [Unknown]
  - Nausea [Unknown]
  - Anxiety [Unknown]
  - Irritability [Unknown]
  - Dysphoria [Unknown]
  - Vertigo [Unknown]
  - Agitation [Unknown]
  - Suicide attempt [Unknown]
  - Nightmare [Unknown]
  - Fatigue [Unknown]
  - Dizziness [Unknown]
